FAERS Safety Report 21201866 (Version 1)
Quarter: 2022Q3

REPORT INFORMATION
  Report Type: Spontaneous
  Country: US (occurrence: US)
  Receive Date: 20220811
  Receipt Date: 20220811
  Transmission Date: 20221027
  Serious: No
  Sender: FDA-Public Use
  Company Number: US-PFIZER INC-202201049443

PATIENT
  Age: 32 Year
  Sex: Female

DRUGS (7)
  1. PAXLOVID [Suspect]
     Active Substance: NIRMATRELVIR\RITONAVIR
     Indication: COVID-19 treatment
     Dosage: UNK
  2. LATUDA [Suspect]
     Active Substance: LURASIDONE HYDROCHLORIDE
     Indication: Schizophrenia
     Dosage: UNK, 2X/DAY (80 MG AT NIGHT AND 60 MG DAY)
  3. SEROQUEL [Concomitant]
     Active Substance: QUETIAPINE FUMARATE
     Dosage: 25 MG, 2X/DAY (DAY AND NIGHT)
  4. TRAZODONE [Concomitant]
     Active Substance: TRAZODONE HYDROCHLORIDE
     Dosage: UNK (AT NIGHT)
  5. GUANFACINE [Concomitant]
     Active Substance: GUANFACINE
     Dosage: UNK
  6. LUVOX [Concomitant]
     Active Substance: FLUVOXAMINE MALEATE
     Dosage: UNK
  7. DIVALPROEX SODIUM [Concomitant]
     Active Substance: DIVALPROEX SODIUM
     Indication: Seizure
     Dosage: UNK

REACTIONS (1)
  - Contraindicated product prescribed [Unknown]
